FAERS Safety Report 8140794-5 (Version None)
Quarter: 2012Q1

REPORT INFORMATION
  Report Type: 
  Country: None (occurrence: None)
  Receive Date: 20120216
  Receipt Date: 20120206
  Transmission Date: 20120608
  Serious: Yes (Death, Other)
  Sender: FDA-Public Use
  Company Number: NO-BRISTOL-MYERS SQUIBB COMPANY-16017006

PATIENT
  Age: 72 Year
  Sex: Female

DRUGS (7)
  1. DIOVAN [Interacting]
  2. FOLIC ACID [Concomitant]
  3. INDERAL RETARD [Concomitant]
  4. VESICARE [Concomitant]
  5. CLOBETASOL PROPIONATE [Concomitant]
     Indication: ECZEMA
     Route: 061
  6. ZOLOFT [Concomitant]
  7. GLUCOPHAGE [Suspect]
     Indication: TYPE 2 DIABETES MELLITUS
     Route: 048

REACTIONS (4)
  - RENAL FAILURE [None]
  - MULTI-ORGAN FAILURE [None]
  - DRUG INTERACTION [None]
  - LACTIC ACIDOSIS [None]
